APPROVED DRUG PRODUCT: ACETYLCYSTEINE
Active Ingredient: ACETYLCYSTEINE
Strength: 6GM/30ML (200MG/ML)
Dosage Form/Route: INJECTABLE;INTRAVENOUS
Application: A200644 | Product #001 | TE Code: AP
Applicant: FRESENIUS KABI USA LLC
Approved: Nov 7, 2012 | RLD: No | RS: No | Type: RX